FAERS Safety Report 18292667 (Version 1)
Quarter: 2020Q3

REPORT INFORMATION
  Report Type: Spontaneous
  Country: US (occurrence: US)
  Receive Date: 20200922
  Receipt Date: 20200922
  Transmission Date: 20201103
  Serious: Yes (Hospitalization)
  Sender: FDA-Public Use
  Company Number: US-AMGEN-USASP2020151889

PATIENT
  Age: 76 Year
  Sex: Female

DRUGS (4)
  1. TRULICITY [Concomitant]
     Active Substance: DULAGLUTIDE
     Dosage: UNK UNK, QWK
  2. REPATHA [Suspect]
     Active Substance: EVOLOCUMAB
     Indication: PRODUCT USED FOR UNKNOWN INDICATION
     Dosage: 140 MILLIGRAM
     Route: 065
     Dates: start: 2016
  3. IRON [Concomitant]
     Active Substance: IRON
     Dosage: 650 MILLIGRAM
  4. INSULIN [Concomitant]
     Active Substance: INSULIN NOS
     Dosage: UNK UNK, QD (EVERY NIGHT)

REACTIONS (2)
  - Wrong technique in product usage process [Unknown]
  - Full blood count decreased [Recovering/Resolving]

NARRATIVE: CASE EVENT DATE: 2020
